FAERS Safety Report 17426089 (Version 1)
Quarter: 2020Q1

REPORT INFORMATION
  Report Type: Report from Study
  Country: None (occurrence: IT)
  Receive Date: 20200218
  Receipt Date: 20200218
  Transmission Date: 20200409
  Serious: Yes (Hospitalization)
  Sender: FDA-Public Use
  Company Number: IT-ABBVIE-20K-083-3274824-00

PATIENT
  Age: 27 Year
  Sex: Female
  Weight: 57 kg

DRUGS (2)
  1. HUMIRA [Suspect]
     Active Substance: ADALIMUMAB
     Indication: CROHN^S DISEASE
     Route: 058
     Dates: start: 20110701, end: 20171102
  2. SALAZOPYRIN [Concomitant]
     Active Substance: SULFASALAZINE
     Indication: SPONDYLITIS
     Dosage: SALAZOPYRIN EN
     Route: 048
     Dates: start: 20090101, end: 20180101

REACTIONS (3)
  - Therapeutic response shortened [Recovered/Resolved]
  - Intestinal anastomosis [Recovered/Resolved]
  - Ileectomy [Recovered/Resolved]

NARRATIVE: CASE EVENT DATE: 20180110
